FAERS Safety Report 5705583-7 (Version None)
Quarter: 2008Q2

REPORT INFORMATION
  Report Type: 
  Country: None (occurrence: None)
  Receive Date: 20080415
  Receipt Date: 20080401
  Transmission Date: 20081010
  Serious: Yes (Other)
  Sender: FDA-Public Use
  Company Number: ES-AMGEN-UK267748

PATIENT
  Sex: Female
  Weight: 60 kg

DRUGS (8)
  1. ARANESP [Suspect]
     Indication: ANAEMIA OF MALIGNANT DISEASE
     Route: 058
     Dates: start: 20071115, end: 20080218
  2. ALLOPURINOL [Suspect]
     Route: 048
     Dates: start: 20060904
  3. FERROGRADUMET [Concomitant]
     Route: 048
     Dates: start: 20051104
  4. ADIRO [Concomitant]
     Route: 048
     Dates: start: 20050511
  5. OMEPRAZOLE [Concomitant]
     Dates: start: 20050511
  6. LEVOTHROID [Concomitant]
     Route: 065
  7. LEUKERAN [Concomitant]
     Route: 048
     Dates: start: 20061214, end: 20061215
  8. PREDNISONE [Concomitant]
     Route: 048
     Dates: start: 20061210, end: 20061213

REACTIONS (1)
  - APLASIA PURE RED CELL [None]
